FAERS Safety Report 8066883-1 (Version None)
Quarter: 2012Q1

REPORT INFORMATION
  Report Type: 
  Country: None (occurrence: None)
  Receive Date: 20120124
  Receipt Date: 20120117
  Transmission Date: 20120608
  Serious: Yes (Life-Threatening, Hospitalization, Other)
  Sender: FDA-Public Use
  Company Number: DE-PFIZER INC-K201100607

PATIENT
  Age: 84 Year
  Sex: Female

DRUGS (9)
  1. TORSEMIDE [Suspect]
     Dosage: 5 MG, 2X/DAY
     Route: 048
     Dates: start: 20100101, end: 20110112
  2. CIPROFLOXACIN [Suspect]
     Indication: URINARY TRACT INFECTION
     Dosage: 500 MG, 2X/DAY
     Route: 048
     Dates: start: 20110106, end: 20110109
  3. BISOPROLOL FUMARATE [Concomitant]
     Dosage: UNK
     Dates: start: 20100101
  4. ROCALTROL [Concomitant]
     Dosage: UNK
     Dates: start: 20100101
  5. CIPROFLOXACIN [Concomitant]
     Dosage: UNK
     Dates: start: 20100706, end: 20100710
  6. ALTACE [Suspect]
     Dosage: 2.5 MG, 2X/DAY
     Route: 048
     Dates: start: 20100101, end: 20110111
  7. GALANTAMINE HYDROBROMIDE [Concomitant]
     Dosage: UNK
     Dates: start: 20100101
  8. CLONAZEPAM [Concomitant]
     Dosage: UNK
     Dates: start: 20100101
  9. METOCLOPRAMIDE [Concomitant]
     Dosage: UNK
     Dates: start: 20100101, end: 20110109

REACTIONS (5)
  - DEHYDRATION [None]
  - FLUID INTAKE REDUCED [None]
  - RENAL FAILURE ACUTE [None]
  - BLOOD CREATININE INCREASED [None]
  - BLOOD UREA INCREASED [None]
